FAERS Safety Report 4460975-1 (Version None)
Quarter: 2004Q3

REPORT INFORMATION
  Report Type: 
  Country: None (occurrence: None)
  Receive Date: 20040928
  Receipt Date: 20040621
  Transmission Date: 20050211
  Serious: No
  Sender: FDA-Public Use
  Company Number: US-GLAXOSMITHKLINE-A0515381A

PATIENT
  Age: 44 Year
  Sex: Female

DRUGS (3)
  1. ADVAIR DISKUS 100/50 [Suspect]
     Dosage: 1PUFF TWICE PER DAY
     Route: 055
     Dates: start: 20040617
  2. CLARINEX [Concomitant]
  3. COUGH MEDICINE [Concomitant]

REACTIONS (2)
  - RASH [None]
  - SOMNOLENCE [None]
